FAERS Safety Report 24777756 (Version 1)
Quarter: 2024Q4

REPORT INFORMATION
  Report Type: Spontaneous
  Country: CN (occurrence: CN)
  Receive Date: 20241226
  Receipt Date: 20241226
  Transmission Date: 20250114
  Serious: Yes (Hospitalization)
  Sender: BAYER HEALTHCARE PHARMACEUTICALS INC.
  Company Number: CN-BAYER-2024A182085

PATIENT
  Age: 67 Year
  Sex: Female
  Weight: 54 kg

DRUGS (2)
  1. STIVARGA [Suspect]
     Active Substance: REGORAFENIB MONOHYDRATE
     Indication: Chemotherapy
     Dosage: 80 MG, QD, 21 DAYS AS A CYCLE, ONCE 4 WEEKS
     Route: 048
     Dates: start: 20241129, end: 20241212
  2. GIMERACIL\OTERACIL\TEGAFUR [Suspect]
     Active Substance: GIMERACIL\OTERACIL POTASSIUM\TEGAFUR
     Indication: Chemotherapy
     Dosage: 50 MG, BID
     Route: 048
     Dates: start: 20241129, end: 20241212

REACTIONS (3)
  - Myelosuppression [Not Recovered/Not Resolved]
  - Incorrect dose administered [None]
  - Product prescribing issue [None]

NARRATIVE: CASE EVENT DATE: 20241129
